FAERS Safety Report 4956761-6 (Version None)
Quarter: 2006Q1

REPORT INFORMATION
  Report Type: 
  Country: None (occurrence: None)
  Receive Date: 20060323
  Receipt Date: 20060308
  Transmission Date: 20060701
  Serious: Yes (Hospitalization, Disabling)
  Sender: FDA-Public Use
  Company Number: 2132

PATIENT
  Age: 30 Year
  Sex: Male

DRUGS (1)
  1. TARGRETIN [Suspect]
     Indication: MYCOSIS FUNGOIDES
     Dosage: 150 MG QD PO
     Route: 048
     Dates: start: 20030201, end: 20060303

REACTIONS (4)
  - DIALYSIS [None]
  - GLOMERULONEPHRITIS [None]
  - GOODPASTURE'S SYNDROME [None]
  - RENAL FAILURE ACUTE [None]
